FAERS Safety Report 8815488 (Version 1)
Quarter: 2012Q4

REPORT INFORMATION
  Report Type: 
  Country: CH (occurrence: CH)
  Receive Date: 20120928
  Receipt Date: 20120928
  Transmission Date: 20130627
  Serious: Yes (Hospitalization)
  Sender: FDA-Public Use
  Company Number: CH-GLAXOSMITHKLINE-B0822651A

PATIENT
  Age: 18 Year
  Sex: Female

DRUGS (3)
  1. TROBALT [Suspect]
     Indication: PARTIAL SEIZURES
     Dosage: 400MG Per day
     Route: 048
     Dates: start: 20110914, end: 20111010
  2. LAMICTAL [Suspect]
     Indication: EPILEPSY
     Dosage: 500MG Per day
     Route: 048
  3. TRILEPTAL [Suspect]
     Indication: EPILEPSY
     Dosage: 900MG Per day
     Route: 048

REACTIONS (6)
  - Suicide attempt [Unknown]
  - Suicidal ideation [Recovered/Resolved]
  - Major depression [Recovered/Resolved]
  - Hallucination [Recovered/Resolved]
  - Somnolence [Recovered/Resolved]
  - Overdose [Unknown]
